FAERS Safety Report 8910482 (Version 1)
Quarter: 2012Q4

REPORT INFORMATION
  Report Type: 
  Country: AU (occurrence: AU)
  Receive Date: 20121115
  Receipt Date: 20121115
  Transmission Date: 20130627
  Serious: Yes (Other)
  Sender: FDA-Public Use
  Company Number: AU-AMGEN-AUSSP2012071675

PATIENT
  Sex: Male

DRUGS (8)
  1. ENBREL [Suspect]
     Indication: ANKYLOSING SPONDYLITIS
     Dosage: UNK
     Dates: start: 201208
  2. CODEINE [Concomitant]
     Dosage: UNK
  3. VALIUM [Concomitant]
     Dosage: as needed
  4. CYMBALTA [Concomitant]
     Dosage: UNK
  5. NAPROXEN [Concomitant]
     Dosage: UNK
  6. AMLODIPINE [Concomitant]
     Dosage: UNK
  7. INDAPAMIDE [Concomitant]
     Dosage: UNK
  8. TRITACE [Concomitant]
     Dosage: UNK

REACTIONS (5)
  - Gastrointestinal haemorrhage [Unknown]
  - Constipation [Unknown]
  - Abdominal discomfort [Unknown]
  - Flatulence [Unknown]
  - Gastrointestinal pain [Unknown]
